FAERS Safety Report 20784021 (Version 2)
Quarter: 2022Q2

REPORT INFORMATION
  Report Type: Spontaneous
  Country: US (occurrence: None)
  Receive Date: 20220504
  Receipt Date: 20220526
  Transmission Date: 20220721
  Serious: No
  Sender: FDA-Public Use
  Company Number: 2022A172290

PATIENT
  Age: 72 Year
  Sex: Female
  Weight: 63.5 kg

DRUGS (1)
  1. BUDESONIDE\FORMOTEROL\GLYCOPYRRONIUM [Suspect]
     Active Substance: BUDESONIDE\FORMOTEROL\GLYCOPYRRONIUM
     Indication: Chronic obstructive pulmonary disease
     Dosage: 160/9/4.8 MCG
     Route: 055
     Dates: start: 20220502

REACTIONS (3)
  - Illness [Unknown]
  - Wrong technique in device usage process [Unknown]
  - Product label confusion [Unknown]

NARRATIVE: CASE EVENT DATE: 20220502
